FAERS Safety Report 10072166 (Version 2)
Quarter: 2014Q2

REPORT INFORMATION
  Report Type: Spontaneous
  Country: DE (occurrence: DE)
  Receive Date: 20140411
  Receipt Date: 20140513
  Transmission Date: 20141212
  Serious: Yes (Other)
  Sender: FDA-Public Use
  Company Number: DE-AMGEN-DEUSP2014024366

PATIENT
  Age: 24 Year
  Sex: Male

DRUGS (1)
  1. NPLATE [Suspect]
     Indication: THROMBOCYTOPENIA
     Dosage: 0.7 ML, QWK
     Route: 058
     Dates: start: 20140130, end: 20140303

REACTIONS (7)
  - Acute myeloid leukaemia [Recovering/Resolving]
  - Myelodysplastic syndrome [Recovering/Resolving]
  - Teratoma [Unknown]
  - Pericardial effusion [Unknown]
  - Chronic myelomonocytic leukaemia [Unknown]
  - White blood cell count increased [Recovered/Resolved]
  - Erythropoiesis abnormal [Unknown]
